FAERS Safety Report 11238191 (Version 3)
Quarter: 2016Q1

REPORT INFORMATION
  Report Type: Spontaneous
  Country: NL (occurrence: NL)
  Receive Date: 20150703
  Receipt Date: 20160125
  Transmission Date: 20160525
  Serious: Yes (Other)
  Sender: FDA-Public Use
  Company Number: NL-GLAXOSMITHKLINE INC.-NL2015GSK095505

PATIENT
  Age: 74 Year
  Sex: Male
  Weight: 72 kg

DRUGS (9)
  1. COMBODART [Suspect]
     Active Substance: DUTASTERIDE\TAMSULOSIN
     Indication: PROSTATIC DISORDER
  2. COMBODART [Suspect]
     Active Substance: DUTASTERIDE\TAMSULOSIN
     Indication: URINARY RETENTION
     Dosage: 1 UNK, QD
     Dates: start: 20111101, end: 20150731
  3. METFORMIN [Concomitant]
     Active Substance: METFORMIN HYDROCHLORIDE
     Indication: PRODUCT USED FOR UNKNOWN INDICATION
  4. PERSANTIN [Concomitant]
     Active Substance: DIPYRIDAMOLE
     Indication: PRODUCT USED FOR UNKNOWN INDICATION
     Dosage: 200 MG, UNK
     Dates: start: 20100702
  5. SIMVASTATINE [Concomitant]
     Active Substance: SIMVASTATIN
     Indication: HYPERCHOLESTEROLAEMIA
     Dosage: 20 MG, UNK
     Dates: start: 20150324
  6. ASCAL [Concomitant]
     Active Substance: CARBASALATE
     Indication: AMAUROSIS FUGAX
     Dosage: 100 MG, UNK
     Dates: start: 20150324
  7. METFORMINE [Concomitant]
     Active Substance: METFORMIN HYDROCHLORIDE
     Indication: DIABETES MELLITUS
     Dosage: 500 MG, UNK
     Dates: start: 20101224
  8. CARBASPIRIN CALCIUM [Concomitant]
     Active Substance: CARBASPIRIN CALCIUM
     Indication: PRODUCT USED FOR UNKNOWN INDICATION
  9. SIMVASTATINE [Concomitant]
     Active Substance: SIMVASTATIN
     Indication: PRODUCT USED FOR UNKNOWN INDICATION

REACTIONS (1)
  - Prostate cancer [Not Recovered/Not Resolved]

NARRATIVE: CASE EVENT DATE: 20150319
